FAERS Safety Report 9477754 (Version 1)
Quarter: 2013Q3

REPORT INFORMATION
  Report Type: Spontaneous
  Country: BR (occurrence: BR)
  Receive Date: 20130827
  Receipt Date: 20130827
  Transmission Date: 20140515
  Serious: Yes (Hospitalization)
  Sender: FDA-Public Use
  Company Number: BR-ASTRAZENECA-2013SE64841

PATIENT
  Sex: Male

DRUGS (11)
  1. OMEPRAZOLE [Suspect]
     Indication: GASTRITIS
     Route: 048
     Dates: start: 2010
  2. BRILINTA [Suspect]
     Route: 048
     Dates: start: 201212
  3. NPH INSULIN [Concomitant]
     Indication: DIABETES PROPHYLAXIS
  4. UNKNOWN DIABETES MEDICATION [Concomitant]
     Indication: DIABETES PROPHYLAXIS
  5. LEVOID [Concomitant]
     Indication: THYROID DISORDER
  6. VALSARTAN [Concomitant]
     Indication: HYPERTENSION
     Dosage: 320+25 MG
  7. NOVANLO [Concomitant]
     Indication: CARDIAC DISORDER
  8. ASPIRINA PREVENT [Concomitant]
  9. ATORVASTATIN [Concomitant]
     Indication: BLOOD CHOLESTEROL ABNORMAL
  10. AVODART [Concomitant]
     Indication: PROSTATIC DISORDER
  11. REGULAR INSULIN [Concomitant]
     Indication: DIABETES PROPHYLAXIS

REACTIONS (2)
  - Coronary artery occlusion [Unknown]
  - Hyperglycaemia [Recovered/Resolved]
